FAERS Safety Report 12437913 (Version 1)
Quarter: 2016Q2

REPORT INFORMATION
  Report Type: Spontaneous
  Country: BG (occurrence: BG)
  Receive Date: 20160606
  Receipt Date: 20160606
  Transmission Date: 20160815
  Serious: Yes (Hospitalization, Other)
  Sender: FDA-Public Use
  Company Number: BG-ASTRAZENECA-2016SE58982

PATIENT
  Age: 47 Year
  Sex: Male

DRUGS (13)
  1. PENTOXIFYLLINE SR [Concomitant]
  2. SYMBICORT [Suspect]
     Active Substance: BUDESONIDE\FORMOTEROL FUMARATE DIHYDRATE
     Dosage: 1 INHALATION TWO TIMES A DAY
     Route: 055
  3. GLICLAZIDE [Concomitant]
     Active Substance: GLICLAZIDE
     Indication: DIABETES MELLITUS
  4. IVABRADINE [Concomitant]
     Active Substance: IVABRADINE
  5. METFORMIN [Concomitant]
     Active Substance: METFORMIN HYDROCHLORIDE
     Indication: TYPE 2 DIABETES MELLITUS
  6. GABAPENTINE [Concomitant]
     Active Substance: GABAPENTIN
  7. TRANDALOPRIL [Concomitant]
  8. PIRACETAM [Concomitant]
     Active Substance: PIRACETAM
     Dosage: 1 TABLET IN THE MORNING AND 1 TABLET AT NOON
  9. NEBIVOLOL. [Concomitant]
     Active Substance: NEBIVOLOL
  10. FENOFIBRATE. [Concomitant]
     Active Substance: FENOFIBRATE
     Indication: DYSLIPIDAEMIA
  11. ASPIRIN. [Concomitant]
     Active Substance: ASPIRIN
  12. XIGDUO XR [Concomitant]
     Active Substance: DAPAGLIFLOZIN PROPANEDIOL\METFORMIN HYDROCHLORIDE
     Indication: DIABETES MELLITUS
     Dosage: 5/1000 MG
  13. SIMVASTATIN. [Concomitant]
     Active Substance: SIMVASTATIN
     Indication: DYSLIPIDAEMIA

REACTIONS (6)
  - Blood glucose abnormal [Unknown]
  - Angina pectoris [Unknown]
  - Gout [Unknown]
  - Osteoporosis [Unknown]
  - Dyslipidaemia [Unknown]
  - Myocardial ischaemia [Unknown]
